FAERS Safety Report 5103180-8 (Version None)
Quarter: 2006Q3

REPORT INFORMATION
  Report Type: 
  Country: None (occurrence: None)
  Receive Date: 20060912
  Receipt Date: 20060912
  Transmission Date: 20061208
  Serious: Yes (Life-Threatening, Hospitalization, Disabling, Other)
  Sender: FDA-Public Use
  Company Number: None

PATIENT
  Age: 94 Year
  Sex: Male
  Weight: 80.9 kg

DRUGS (1)
  1. PLAVIX [Suspect]
     Indication: CEREBROVASCULAR DISORDER
     Dosage: 75 MG DAILY (ORAL)
     Route: 048

REACTIONS (3)
  - DELIRIUM [None]
  - DISEASE RECURRENCE [None]
  - SUBDURAL HAEMATOMA [None]
